FAERS Safety Report 18135530 (Version 1)
Quarter: 2020Q3

REPORT INFORMATION
  Report Type: Spontaneous
  Country: US (occurrence: US)
  Receive Date: 20200811
  Receipt Date: 20200811
  Transmission Date: 20201103
  Serious: Yes (Death)
  Sender: FDA-Public Use
  Company Number: None

PATIENT
  Age: 83 Year
  Sex: Male
  Weight: 61.3 kg

DRUGS (1)
  1. REMDESIVIR. [Suspect]
     Active Substance: REMDESIVIR
     Indication: COVID-19
     Route: 042
     Dates: start: 20200725, end: 20200729

REACTIONS (4)
  - COVID-19 pneumonia [None]
  - Acidosis [None]
  - Drug ineffective [None]
  - Cardio-respiratory arrest [None]

NARRATIVE: CASE EVENT DATE: 20200804
